FAERS Safety Report 23139868 (Version 5)
Quarter: 2024Q1

REPORT INFORMATION
  Report Type: Spontaneous
  Country: US (occurrence: US)
  Receive Date: 20231102
  Receipt Date: 20240229
  Transmission Date: 20240410
  Serious: No
  Sender: FDA-Public Use
  Company Number: US-BIOGEN-2023BI01187995

PATIENT
  Age: 47 Year
  Sex: Female

DRUGS (8)
  1. VUMERITY [Interacting]
     Active Substance: DIROXIMEL FUMARATE
     Indication: Multiple sclerosis
     Route: 050
     Dates: start: 20230211, end: 20230216
  2. VUMERITY [Interacting]
     Active Substance: DIROXIMEL FUMARATE
     Dosage: FOR 7 DAYS
     Route: 050
     Dates: start: 20230204, end: 20230210
  3. VUMERITY [Interacting]
     Active Substance: DIROXIMEL FUMARATE
     Route: 050
     Dates: start: 20231219, end: 20240101
  4. VUMERITY [Interacting]
     Active Substance: DIROXIMEL FUMARATE
     Route: 050
     Dates: start: 20240102, end: 20240115
  5. VUMERITY [Interacting]
     Active Substance: DIROXIMEL FUMARATE
     Route: 050
     Dates: start: 20240116
  6. VUMERITY [Interacting]
     Active Substance: DIROXIMEL FUMARATE
     Route: 050
     Dates: start: 20240131
  7. COPAXONE [Interacting]
     Active Substance: GLATIRAMER ACETATE
     Indication: Multiple sclerosis
     Dosage: 40 MILLIGRAM/MILLILITER
     Route: 050
     Dates: end: 20230208
  8. COPAXONE [Interacting]
     Active Substance: GLATIRAMER ACETATE
     Dosage: 40 MILLIGRAM/MILLILITER
     Route: 050
     Dates: start: 20230918, end: 20231109

REACTIONS (13)
  - Multiple sclerosis relapse [Not Recovered/Not Resolved]
  - Cyanosis [Not Recovered/Not Resolved]
  - Eructation [Unknown]
  - Malaise [Unknown]
  - Fatigue [Recovered/Resolved]
  - Drug interaction [Recovered/Resolved]
  - Toxicity to various agents [Recovered/Resolved]
  - Abdominal pain upper [Not Recovered/Not Resolved]
  - Diarrhoea [Not Recovered/Not Resolved]
  - Pruritus [Unknown]
  - Erythema [Unknown]
  - Nausea [Recovered/Resolved]
  - Feeling hot [Recovered/Resolved]

NARRATIVE: CASE EVENT DATE: 20230201
